FAERS Safety Report 23531612 (Version 5)
Quarter: 2025Q1

REPORT INFORMATION
  Report Type: Spontaneous
  Country: CA (occurrence: CA)
  Receive Date: 20240216
  Receipt Date: 20250321
  Transmission Date: 20250409
  Serious: Yes (Death, Life-Threatening, Hospitalization, Disabling, Other)
  Sender: NOVARTIS
  Company Number: CA-002147023-NVSC2024CA031668

PATIENT
  Age: 44 Year
  Sex: Female

DRUGS (312)
  1. RITUXIMAB [Suspect]
     Active Substance: RITUXIMAB
     Indication: Rheumatoid arthritis
     Route: 042
  2. RITUXIMAB [Suspect]
     Active Substance: RITUXIMAB
     Indication: Abdominal discomfort
     Route: 058
  3. RITUXIMAB [Suspect]
     Active Substance: RITUXIMAB
     Route: 065
  4. RITUXIMAB [Suspect]
     Active Substance: RITUXIMAB
     Route: 042
  5. RITUXIMAB [Suspect]
     Active Substance: RITUXIMAB
     Route: 042
  6. ADALIMUMAB [Suspect]
     Active Substance: ADALIMUMAB
     Indication: Rheumatoid arthritis
     Route: 065
  7. ADALIMUMAB [Suspect]
     Active Substance: ADALIMUMAB
     Indication: Psoriatic arthropathy
     Route: 058
  8. ADALIMUMAB [Suspect]
     Active Substance: ADALIMUMAB
     Route: 042
  9. ADALIMUMAB [Suspect]
     Active Substance: ADALIMUMAB
     Route: 058
  10. ADALIMUMAB [Suspect]
     Active Substance: ADALIMUMAB
     Route: 058
  11. ADALIMUMAB [Suspect]
     Active Substance: ADALIMUMAB
     Route: 048
  12. ADALIMUMAB [Suspect]
     Active Substance: ADALIMUMAB
     Route: 065
  13. COSENTYX [Suspect]
     Active Substance: SECUKINUMAB
     Indication: Rheumatoid arthritis
     Route: 005
  14. COSENTYX [Suspect]
     Active Substance: SECUKINUMAB
     Indication: Psoriatic arthropathy
     Route: 065
  15. DICLOFENAC [Suspect]
     Active Substance: DICLOFENAC
     Indication: Product used for unknown indication
     Route: 065
  16. DICLOFENAC [Suspect]
     Active Substance: DICLOFENAC
     Route: 047
  17. METHOTREXATE [Suspect]
     Active Substance: METHOTREXATE
     Indication: Rheumatoid arthritis
     Route: 065
  18. METHOTREXATE [Suspect]
     Active Substance: METHOTREXATE
     Route: 048
  19. METHOTREXATE [Suspect]
     Active Substance: METHOTREXATE
     Dosage: 25 MG, QD
     Route: 058
  20. METHOTREXATE [Suspect]
     Active Substance: METHOTREXATE
     Dosage: 20 MG, QW
     Route: 013
  21. METHOTREXATE [Suspect]
     Active Substance: METHOTREXATE
     Route: 048
  22. METHOTREXATE [Suspect]
     Active Substance: METHOTREXATE
     Dosage: 25 MG, QW
     Route: 048
  23. METHOTREXATE [Suspect]
     Active Substance: METHOTREXATE
     Route: 013
  24. METHOTREXATE [Suspect]
     Active Substance: METHOTREXATE
     Route: 048
  25. METHOTREXATE [Suspect]
     Active Substance: METHOTREXATE
     Dosage: 2 G, QD
     Route: 048
  26. METHOTREXATE [Suspect]
     Active Substance: METHOTREXATE
     Route: 048
  27. METHOTREXATE [Suspect]
     Active Substance: METHOTREXATE
     Route: 058
  28. METHOTREXATE [Suspect]
     Active Substance: METHOTREXATE
     Dosage: 20 MG, QW
     Route: 058
  29. METHOTREXATE [Suspect]
     Active Substance: METHOTREXATE
     Route: 042
  30. METHOTREXATE [Suspect]
     Active Substance: METHOTREXATE
     Dosage: 2 DOSAGE FORM, QD
     Route: 048
  31. METHOTREXATE [Suspect]
     Active Substance: METHOTREXATE
     Route: 048
  32. METHOTREXATE [Suspect]
     Active Substance: METHOTREXATE
     Dosage: 500 MG, BID
     Route: 065
  33. METHOTREXATE [Suspect]
     Active Substance: METHOTREXATE
     Route: 048
  34. METHOTREXATE [Suspect]
     Active Substance: METHOTREXATE
     Dosage: 25 MG, QD
     Route: 065
  35. METHOTREXATE [Suspect]
     Active Substance: METHOTREXATE
     Dosage: 15 MG, QD
     Route: 048
  36. METHOTREXATE [Suspect]
     Active Substance: METHOTREXATE
     Dosage: 2 G, QD
     Route: 065
  37. METHOTREXATE [Suspect]
     Active Substance: METHOTREXATE
     Dosage: 25 MG, QW
     Route: 065
  38. METHOTREXATE [Suspect]
     Active Substance: METHOTREXATE
     Route: 065
  39. METHOTREXATE [Suspect]
     Active Substance: METHOTREXATE
     Route: 065
  40. METHOTREXATE [Suspect]
     Active Substance: METHOTREXATE
     Route: 065
  41. METHOTREXATE [Suspect]
     Active Substance: METHOTREXATE
     Dosage: 25 MG, QD
     Route: 065
  42. METHOTREXATE [Suspect]
     Active Substance: METHOTREXATE
     Dosage: 25 MG, QW
     Route: 065
  43. METHOTREXATE [Suspect]
     Active Substance: METHOTREXATE
     Route: 048
  44. METHOTREXATE [Suspect]
     Active Substance: METHOTREXATE
     Route: 065
  45. METHOTREXATE [Suspect]
     Active Substance: METHOTREXATE
     Route: 058
  46. METHOTREXATE [Suspect]
     Active Substance: METHOTREXATE
     Dosage: 25 MG, QW
     Route: 058
  47. METHOTREXATE [Suspect]
     Active Substance: METHOTREXATE
     Dosage: 20 MG, QD
     Route: 048
  48. METHOTREXATE [Suspect]
     Active Substance: METHOTREXATE
     Dosage: 25 MG, QD
     Route: 013
  49. METHOTREXATE [Suspect]
     Active Substance: METHOTREXATE
     Dosage: 25 MG, QD
     Route: 048
  50. METHOTREXATE [Suspect]
     Active Substance: METHOTREXATE
     Route: 048
  51. METHOTREXATE [Suspect]
     Active Substance: METHOTREXATE
     Route: 013
  52. METHOTREXATE [Suspect]
     Active Substance: METHOTREXATE
     Dosage: 20 MG, QW
     Route: 048
  53. METHOTREXATE [Suspect]
     Active Substance: METHOTREXATE
     Dosage: 25 MG, QW
     Route: 013
  54. METHOTREXATE [Suspect]
     Active Substance: METHOTREXATE
     Route: 065
  55. METHOTREXATE [Suspect]
     Active Substance: METHOTREXATE
     Dosage: 25 MG, QW (11.0 YEARS)
     Route: 048
  56. METHOTREXATE [Suspect]
     Active Substance: METHOTREXATE
     Dosage: UNK, QD
     Route: 048
  57. PREDNISONE [Suspect]
     Active Substance: PREDNISONE
     Indication: Rheumatoid arthritis
     Route: 065
  58. PREDNISONE [Suspect]
     Active Substance: PREDNISONE
     Indication: Psoriatic arthropathy
     Route: 065
  59. PREDNISONE [Suspect]
     Active Substance: PREDNISONE
     Indication: Condition aggravated
     Route: 048
  60. PREDNISONE [Suspect]
     Active Substance: PREDNISONE
     Dosage: 7.5 MG, QD
     Route: 048
  61. PREDNISONE [Suspect]
     Active Substance: PREDNISONE
     Route: 048
  62. PREDNISONE [Suspect]
     Active Substance: PREDNISONE
     Route: 048
  63. ERELZI [Suspect]
     Active Substance: ETANERCEPT-SZZS
     Indication: Rheumatoid arthritis
     Route: 065
  64. DICLOFENAC POTASSIUM [Suspect]
     Active Substance: DICLOFENAC POTASSIUM
     Indication: Product used for unknown indication
     Dosage: 50 MG, QD
     Route: 065
  65. DICLOFENAC POTASSIUM [Suspect]
     Active Substance: DICLOFENAC POTASSIUM
     Route: 065
  66. DICLOFENAC POTASSIUM [Suspect]
     Active Substance: DICLOFENAC POTASSIUM
     Route: 048
  67. DICLOFENAC POTASSIUM [Suspect]
     Active Substance: DICLOFENAC POTASSIUM
     Route: 050
  68. DICLOFENAC POTASSIUM [Suspect]
     Active Substance: DICLOFENAC POTASSIUM
     Route: 065
  69. METHOTREXATE [Suspect]
     Active Substance: METHOTREXATE
     Indication: Rheumatoid arthritis
     Dosage: 20 MG, QD
     Route: 048
  70. ALENDRONIC ACID [Suspect]
     Active Substance: ALENDRONIC ACID
     Indication: Rheumatoid arthritis
     Route: 048
  71. ALENDRONIC ACID [Suspect]
     Active Substance: ALENDRONIC ACID
     Route: 065
  72. LEFLUNOMIDE [Suspect]
     Active Substance: LEFLUNOMIDE
     Indication: Rheumatoid arthritis
     Route: 048
  73. LEFLUNOMIDE [Suspect]
     Active Substance: LEFLUNOMIDE
     Route: 048
  74. LEFLUNOMIDE [Suspect]
     Active Substance: LEFLUNOMIDE
     Route: 065
  75. LEFLUNOMIDE [Suspect]
     Active Substance: LEFLUNOMIDE
     Route: 048
  76. MYCOPHENOLATE MOFETIL [Suspect]
     Active Substance: MYCOPHENOLATE MOFETIL
     Indication: Product used for unknown indication
     Route: 065
  77. OXYCODONE [Suspect]
     Active Substance: OXYCODONE
     Indication: Product used for unknown indication
     Route: 065
  78. OXYCODONE [Suspect]
     Active Substance: OXYCODONE
     Route: 065
  79. OXYCODONE [Suspect]
     Active Substance: OXYCODONE
     Route: 065
  80. OXYCODONE HYDROCHLORIDE [Suspect]
     Active Substance: OXYCODONE HYDROCHLORIDE
     Indication: Product used for unknown indication
     Route: 065
  81. PANTOPRAZOLE [Suspect]
     Active Substance: PANTOPRAZOLE
     Indication: Product used for unknown indication
     Route: 048
  82. PANTOPRAZOLE [Suspect]
     Active Substance: PANTOPRAZOLE
     Route: 016
  83. PREDNISOLONE [Suspect]
     Active Substance: PREDNISOLONE
     Indication: Product used for unknown indication
     Route: 065
  84. PREGABALIN [Suspect]
     Active Substance: PREGABALIN
     Indication: Product used for unknown indication
     Route: 065
  85. ACETAMINOPHEN [Suspect]
     Active Substance: ACETAMINOPHEN
     Indication: Rheumatoid arthritis
     Route: 065
  86. ACETAMINOPHEN [Suspect]
     Active Substance: ACETAMINOPHEN
     Indication: Pyrexia
  87. ACETAMINOPHEN [Suspect]
     Active Substance: ACETAMINOPHEN
     Indication: Pain
  88. ACETAMINOPHEN AND CODEINE [Suspect]
     Active Substance: ACETAMINOPHEN\CODEINE PHOSPHATE
     Indication: Product used for unknown indication
     Route: 065
  89. ACTEMRA [Suspect]
     Active Substance: TOCILIZUMAB
     Indication: Rheumatoid arthritis
     Route: 065
  90. ACTEMRA [Suspect]
     Active Substance: TOCILIZUMAB
     Route: 042
  91. ACTEMRA [Suspect]
     Active Substance: TOCILIZUMAB
     Route: 042
  92. ACTEMRA [Suspect]
     Active Substance: TOCILIZUMAB
     Route: 058
  93. ACTEMRA [Suspect]
     Active Substance: TOCILIZUMAB
     Route: 016
  94. ACTEMRA [Suspect]
     Active Substance: TOCILIZUMAB
     Route: 048
  95. ACTEMRA [Suspect]
     Active Substance: TOCILIZUMAB
     Route: 065
  96. ACTEMRA [Suspect]
     Active Substance: TOCILIZUMAB
     Route: 065
  97. ACTEMRA [Suspect]
     Active Substance: TOCILIZUMAB
     Route: 058
  98. ACTEMRA [Suspect]
     Active Substance: TOCILIZUMAB
     Dosage: 2912 MG, QW
     Route: 058
  99. ACTEMRA [Suspect]
     Active Substance: TOCILIZUMAB
     Route: 042
  100. ACTEMRA [Suspect]
     Active Substance: TOCILIZUMAB
     Dosage: 752 MG, QW
     Route: 042
  101. ACTEMRA [Suspect]
     Active Substance: TOCILIZUMAB
     Dosage: 752 MG, QD
     Route: 042
  102. ACTEMRA [Suspect]
     Active Substance: TOCILIZUMAB
     Dosage: 30110.2 MG, QW
     Route: 042
  103. DICLOFENAC SODIUM [Suspect]
     Active Substance: DICLOFENAC SODIUM
     Indication: Product used for unknown indication
     Route: 048
  104. DICLOFENAC SODIUM [Suspect]
     Active Substance: DICLOFENAC SODIUM
     Route: 065
  105. DICLOFENAC SODIUM [Suspect]
     Active Substance: DICLOFENAC SODIUM
     Route: 047
  106. DICLOFENAC SODIUM [Suspect]
     Active Substance: DICLOFENAC SODIUM
     Route: 065
  107. PREDNISONE [Suspect]
     Active Substance: PREDNISONE
     Indication: Systemic lupus erythematosus
     Route: 065
  108. PREDNISONE [Suspect]
     Active Substance: PREDNISONE
     Indication: Synovitis
     Route: 048
  109. PREDNISONE [Suspect]
     Active Substance: PREDNISONE
     Indication: Rheumatoid arthritis
     Route: 048
  110. PREDNISONE [Suspect]
     Active Substance: PREDNISONE
     Indication: Psoriatic arthropathy
     Route: 065
  111. PREDNISONE [Suspect]
     Active Substance: PREDNISONE
     Indication: Pemphigus
     Route: 048
  112. PREDNISONE [Suspect]
     Active Substance: PREDNISONE
     Indication: Inflammation
  113. PREDNISONE [Suspect]
     Active Substance: PREDNISONE
     Indication: Bursitis
  114. APREMILAST [Suspect]
     Active Substance: APREMILAST
     Indication: Product used for unknown indication
     Route: 065
  115. APREMILAST [Suspect]
     Active Substance: APREMILAST
     Route: 065
  116. APREMILAST [Suspect]
     Active Substance: APREMILAST
     Route: 048
  117. APREPITANT [Suspect]
     Active Substance: APREPITANT
     Indication: Product used for unknown indication
     Route: 042
  118. APREPITANT [Suspect]
     Active Substance: APREPITANT
     Route: 048
  119. APREPITANT [Suspect]
     Active Substance: APREPITANT
     Route: 065
  120. APREPITANT [Suspect]
     Active Substance: APREPITANT
     Route: 065
  121. ARAVA [Suspect]
     Active Substance: LEFLUNOMIDE
     Indication: Rheumatoid arthritis
     Dosage: 20 MG, QD
     Route: 048
  122. ARAVA [Suspect]
     Active Substance: LEFLUNOMIDE
     Route: 048
  123. ARAVA [Suspect]
     Active Substance: LEFLUNOMIDE
     Route: 019
  124. ARAVA [Suspect]
     Active Substance: LEFLUNOMIDE
     Route: 048
  125. ARAVA [Suspect]
     Active Substance: LEFLUNOMIDE
     Route: 005
  126. ASACOL [Suspect]
     Active Substance: MESALAMINE
     Indication: Product used for unknown indication
     Route: 065
  127. CALCIUM CARBONATE [Suspect]
     Active Substance: CALCIUM CARBONATE
     Indication: Product used for unknown indication
     Route: 065
  128. CALCIUM GLUBIONATE [Suspect]
     Active Substance: CALCIUM GLUBIONATE
     Indication: Product used for unknown indication
     Route: 016
  129. CELEBREX [Suspect]
     Active Substance: CELECOXIB
     Indication: Arthritis
     Dosage: 2 DOSAGE FORM, QD
     Route: 048
  130. CELECOXIB [Suspect]
     Active Substance: CELECOXIB
     Indication: Product used for unknown indication
     Dosage: 1 DOSAGE FORM, QD
     Route: 048
  131. CERTOLIZUMAB PEGOL [Suspect]
     Active Substance: CERTOLIZUMAB PEGOL
     Indication: Product used for unknown indication
     Route: 065
  132. CETIRIZINE HYDROCHLORIDE [Suspect]
     Active Substance: CETIRIZINE HYDROCHLORIDE
     Indication: Rheumatoid arthritis
     Route: 065
  133. CETIRIZINE HYDROCHLORIDE [Suspect]
     Active Substance: CETIRIZINE HYDROCHLORIDE
     Indication: Off label use
     Route: 048
  134. CETIRIZINE HYDROCHLORIDE [Suspect]
     Active Substance: CETIRIZINE HYDROCHLORIDE
     Dosage: 10 MG, QD
     Route: 048
  135. CETIRIZINE HYDROCHLORIDE [Suspect]
     Active Substance: CETIRIZINE HYDROCHLORIDE
     Route: 048
  136. CETIRIZINE HYDROCHLORIDE [Suspect]
     Active Substance: CETIRIZINE HYDROCHLORIDE
     Route: 048
  137. CHLORAPREP [Suspect]
     Active Substance: CHLORHEXIDINE GLUCONATE\ISOPROPYL ALCOHOL
     Indication: Product used for unknown indication
     Route: 050
  138. CHLORHEXIDINE [Suspect]
     Active Substance: CHLORHEXIDINE
     Indication: Product used for unknown indication
     Route: 048
  139. CHLORHEXIDINE [Suspect]
     Active Substance: CHLORHEXIDINE
     Route: 050
  140. CHLORHEXIDINE [Suspect]
     Active Substance: CHLORHEXIDINE
     Route: 002
  141. CHLORHEXIDINE GLUCONATE [Suspect]
     Active Substance: CHLORHEXIDINE GLUCONATE
     Indication: Product used for unknown indication
     Route: 050
  142. CHLORHEXIDINE GLUCONATE [Suspect]
     Active Substance: CHLORHEXIDINE GLUCONATE
     Route: 048
  143. CHLORHEXIDINE GLUCONATE [Suspect]
     Active Substance: CHLORHEXIDINE GLUCONATE
     Route: 002
  144. CHOLECALCIFEROL [Suspect]
     Active Substance: CHOLECALCIFEROL
     Indication: Product used for unknown indication
     Route: 065
  145. CHOLECALCIFEROL [Suspect]
     Active Substance: CHOLECALCIFEROL
     Route: 016
  146. CIMZIA [Suspect]
     Active Substance: CERTOLIZUMAB PEGOL
     Indication: Rheumatoid arthritis
     Route: 058
  147. CIMZIA [Suspect]
     Active Substance: CERTOLIZUMAB PEGOL
     Route: 065
  148. CIMZIA [Suspect]
     Active Substance: CERTOLIZUMAB PEGOL
     Route: 058
  149. CIMZIA [Suspect]
     Active Substance: CERTOLIZUMAB PEGOL
     Route: 058
  150. CIMZIA [Suspect]
     Active Substance: CERTOLIZUMAB PEGOL
     Dosage: 1 DOSAGE FORM, QD
     Route: 058
  151. CORTISONE ACETATE [Suspect]
     Active Substance: CORTISONE ACETATE
     Indication: Rheumatoid arthritis
     Route: 065
  152. CORTISONE ACETATE [Suspect]
     Active Substance: CORTISONE ACETATE
     Route: 050
  153. CORTISONE ACETATE [Suspect]
     Active Substance: CORTISONE ACETATE
     Route: 048
  154. CORTISONE ACETATE [Suspect]
     Active Substance: CORTISONE ACETATE
     Route: 050
  155. CORTISONE ACETATE [Suspect]
     Active Substance: CORTISONE ACETATE
     Route: 065
  156. DICLOFENAC DIETHYLAMINE [Suspect]
     Active Substance: DICLOFENAC DIETHYLAMINE
     Indication: Product used for unknown indication
     Route: 065
  157. DICLOFENAC SODIUM [Suspect]
     Active Substance: DICLOFENAC SODIUM
     Indication: Product used for unknown indication
     Route: 065
  158. DICLOFENAC SODIUM [Suspect]
     Active Substance: DICLOFENAC SODIUM
     Route: 047
  159. DICLOFENAC SODIUM [Suspect]
     Active Substance: DICLOFENAC SODIUM
     Route: 047
  160. DICLOFENAC SODIUM [Suspect]
     Active Substance: DICLOFENAC SODIUM
     Route: 065
  161. DICLOFENAC SODIUM [Suspect]
     Active Substance: DICLOFENAC SODIUM
     Route: 058
  162. DICLOFENAC SODIUM [Suspect]
     Active Substance: DICLOFENAC SODIUM
     Route: 048
  163. DICLOFENAC SODIUM [Suspect]
     Active Substance: DICLOFENAC SODIUM
     Route: 065
  164. DICLOFENAC SODIUM [Suspect]
     Active Substance: DICLOFENAC SODIUM
     Route: 050
  165. DICLOFENAC SODIUM [Suspect]
     Active Substance: DICLOFENAC SODIUM
     Route: 065
  166. DILTIAZEM [Suspect]
     Active Substance: DILTIAZEM
     Indication: Product used for unknown indication
     Route: 065
  167. DILTIAZEM HYDROCHLORIDE [Suspect]
     Active Substance: DILTIAZEM HYDROCHLORIDE
     Indication: Product used for unknown indication
     Route: 042
  168. ENBREL [Suspect]
     Active Substance: ETANERCEPT
     Indication: Rheumatoid arthritis
     Dosage: 50 MG, QW
     Route: 058
  169. ENBREL [Suspect]
     Active Substance: ETANERCEPT
     Indication: Psoriatic arthropathy
     Dosage: 20 MG, QW
     Route: 058
  170. ENBREL [Suspect]
     Active Substance: ETANERCEPT
     Route: 058
  171. ENBREL [Suspect]
     Active Substance: ETANERCEPT
     Dosage: 20 MG, QD
     Route: 058
  172. ENBREL [Suspect]
     Active Substance: ETANERCEPT
     Route: 058
  173. ENTYVIO [Suspect]
     Active Substance: VEDOLIZUMAB
     Indication: Product used for unknown indication
     Route: 065
  174. FLUMETHASONE PIVALATE [Suspect]
     Active Substance: FLUMETHASONE PIVALATE
     Indication: Rheumatoid arthritis
     Route: 003
  175. FOLIC ACID [Suspect]
     Active Substance: FOLIC ACID
     Indication: Rheumatoid arthritis
     Route: 048
  176. FOLIC ACID [Suspect]
     Active Substance: FOLIC ACID
     Route: 048
  177. FOLIC ACID [Suspect]
     Active Substance: FOLIC ACID
     Route: 048
  178. FOLIC ACID [Suspect]
     Active Substance: FOLIC ACID
     Route: 048
  179. FOLIC ACID [Suspect]
     Active Substance: FOLIC ACID
     Route: 048
  180. FOLIC ACID [Suspect]
     Active Substance: FOLIC ACID
     Route: 048
  181. FOLIC ACID [Suspect]
     Active Substance: FOLIC ACID
     Route: 048
  182. FOLIC ACID [Suspect]
     Active Substance: FOLIC ACID
     Dosage: 1 MG, QD
     Route: 065
  183. FOLIC ACID [Suspect]
     Active Substance: FOLIC ACID
     Route: 065
  184. FOLIC ACID [Suspect]
     Active Substance: FOLIC ACID
     Dosage: 5 MG, QD
     Route: 065
  185. FOLIC ACID [Suspect]
     Active Substance: FOLIC ACID
     Route: 065
  186. FOLIC ACID [Suspect]
     Active Substance: FOLIC ACID
     Route: 065
  187. FOLIC ACID [Suspect]
     Active Substance: FOLIC ACID
     Route: 065
  188. FOLIC ACID [Suspect]
     Active Substance: FOLIC ACID
     Route: 048
  189. FOLIC ACID [Suspect]
     Active Substance: FOLIC ACID
     Route: 048
  190. FOLIC ACID [Suspect]
     Active Substance: FOLIC ACID
     Route: 048
  191. FOLIC ACID [Suspect]
     Active Substance: FOLIC ACID
     Route: 048
  192. FOLIC ACID [Suspect]
     Active Substance: FOLIC ACID
     Route: 048
  193. FOSAMAX [Suspect]
     Active Substance: ALENDRONATE SODIUM
     Indication: Rheumatoid arthritis
     Route: 048
  194. FOSAMAX [Suspect]
     Active Substance: ALENDRONATE SODIUM
     Route: 058
  195. FOSAMAX [Suspect]
     Active Substance: ALENDRONATE SODIUM
     Route: 016
  196. FOSAMAX [Suspect]
     Active Substance: ALENDRONATE SODIUM
     Route: 005
  197. GOLIMUMAB [Suspect]
     Active Substance: GOLIMUMAB
     Indication: Rheumatoid arthritis
     Route: 058
  198. HUMIRA [Suspect]
     Active Substance: ADALIMUMAB
     Indication: Rheumatoid arthritis
     Route: 058
  199. HUMIRA [Suspect]
     Active Substance: ADALIMUMAB
     Indication: Psoriatic arthropathy
     Route: 058
  200. HUMIRA [Suspect]
     Active Substance: ADALIMUMAB
     Route: 057
  201. HUMIRA [Suspect]
     Active Substance: ADALIMUMAB
     Route: 065
  202. HUMIRA [Suspect]
     Active Substance: ADALIMUMAB
     Route: 058
  203. HYDROCORTISONE [Suspect]
     Active Substance: HYDROCORTISONE
     Indication: Rheumatoid arthritis
     Route: 065
  204. HYDROCORTISONE [Suspect]
     Active Substance: HYDROCORTISONE
     Route: 050
  205. HYDROCORTISONE [Suspect]
     Active Substance: HYDROCORTISONE
     Route: 003
  206. HYDROCORTISONE [Suspect]
     Active Substance: HYDROCORTISONE
     Route: 048
  207. HYDROCORTISONE [Suspect]
     Active Substance: HYDROCORTISONE
     Route: 058
  208. HYDROCORTISONE BUTYRATE [Suspect]
     Active Substance: HYDROCORTISONE BUTYRATE
     Indication: Rheumatoid arthritis
     Route: 065
  209. HYDROCORTISONE BUTYRATE [Suspect]
     Active Substance: HYDROCORTISONE BUTYRATE
     Route: 050
  210. HYDROCORTISONE BUTYRATE [Suspect]
     Active Substance: HYDROCORTISONE BUTYRATE
     Route: 058
  211. HYDROCORTISONE SODIUM SUCCINATE [Suspect]
     Active Substance: HYDROCORTISONE SODIUM SUCCINATE
     Indication: Rheumatoid arthritis
     Route: 048
  212. HYDROCORTISONE SODIUM SUCCINATE [Suspect]
     Active Substance: HYDROCORTISONE SODIUM SUCCINATE
     Route: 048
  213. HYDROXYCHLOROQUINE [Suspect]
     Active Substance: HYDROXYCHLOROQUINE
     Indication: Rheumatoid arthritis
     Dosage: 200 MG, BID
     Route: 065
  214. HYDROXYCHLOROQUINE [Suspect]
     Active Substance: HYDROXYCHLOROQUINE
     Route: 048
  215. HYDROXYCHLOROQUINE [Suspect]
     Active Substance: HYDROXYCHLOROQUINE
     Route: 065
  216. HYDROXYCHLOROQUINE [Suspect]
     Active Substance: HYDROXYCHLOROQUINE
     Route: 048
  217. HYDROXYCHLOROQUINE [Suspect]
     Active Substance: HYDROXYCHLOROQUINE
     Route: 065
  218. HYDROXYCHLOROQUINE [Suspect]
     Active Substance: HYDROXYCHLOROQUINE
     Dosage: 400 MG, QD
     Route: 048
  219. HYDROXYCHLOROQUINE SULFATE [Suspect]
     Active Substance: HYDROXYCHLOROQUINE SULFATE
     Indication: Systemic lupus erythematosus
     Dosage: 1 DOSAGE FORM, QD
     Route: 058
  220. HYDROXYCHLOROQUINE SULFATE [Suspect]
     Active Substance: HYDROXYCHLOROQUINE SULFATE
     Indication: Rheumatoid arthritis
     Dosage: 420 MG, QD
     Route: 048
  221. HYDROXYCHLOROQUINE SULFATE [Suspect]
     Active Substance: HYDROXYCHLOROQUINE SULFATE
     Dosage: 5 MG, QD
     Route: 048
  222. HYDROXYCHLOROQUINE SULFATE [Suspect]
     Active Substance: HYDROXYCHLOROQUINE SULFATE
     Dosage: 400 MG, QD
     Route: 065
  223. INFLIXIMAB [Suspect]
     Active Substance: INFLIXIMAB
     Indication: Rheumatoid arthritis
     Route: 042
  224. INFLIXIMAB [Suspect]
     Active Substance: INFLIXIMAB
     Route: 065
  225. INFLIXIMAB [Suspect]
     Active Substance: INFLIXIMAB
     Route: 042
  226. ISOPROPYL ALCOHOL [Suspect]
     Active Substance: ISOPROPYL ALCOHOL
     Indication: Product used for unknown indication
     Route: 065
  227. ISOPROPYL ALCOHOL [Suspect]
     Active Substance: ISOPROPYL ALCOHOL
     Route: 050
  228. LISINOPRIL [Suspect]
     Active Substance: LISINOPRIL
     Indication: Product used for unknown indication
     Route: 065
  229. LYRICA [Suspect]
     Active Substance: PREGABALIN
     Indication: Product used for unknown indication
     Route: 065
  230. MINOCYCLINE HYDROCHLORIDE [Suspect]
     Active Substance: MINOCYCLINE HYDROCHLORIDE
     Indication: Product used for unknown indication
     Route: 065
  231. NAPROXEN SODIUM [Suspect]
     Active Substance: NAPROXEN SODIUM
     Indication: Rheumatoid arthritis
     Dosage: 1000 MG, QD (500 MG, BID)
     Route: 065
  232. NEOMYCIN [Suspect]
     Active Substance: NEOMYCIN
     Indication: Product used for unknown indication
     Route: 065
  233. ORENCIA [Suspect]
     Active Substance: ABATACEPT
     Indication: Rheumatoid arthritis
     Dosage: 120 MG, QW
     Route: 065
  234. ORENCIA [Suspect]
     Active Substance: ABATACEPT
     Dosage: 17.857 MG, QW
     Route: 042
  235. ORENCIA [Suspect]
     Active Substance: ABATACEPT
     Route: 015
  236. ORENCIA [Suspect]
     Active Substance: ABATACEPT
     Dosage: 125 MG, QW
     Route: 058
  237. ORENCIA [Suspect]
     Active Substance: ABATACEPT
     Route: 042
  238. ORENCIA [Suspect]
     Active Substance: ABATACEPT
     Dosage: 18 MG, QD
     Route: 058
  239. PARA-AMINOSALICYLIC ACID [Suspect]
     Active Substance: AMINOSALICYLIC ACID
     Indication: Product used for unknown indication
     Route: 065
  240. PERIOGARD [Suspect]
     Active Substance: CHLORHEXIDINE GLUCONATE
     Indication: Product used for unknown indication
     Route: 048
  241. PERIOGARD [Suspect]
     Active Substance: CHLORHEXIDINE GLUCONATE
     Route: 002
  242. PERIOGARD [Suspect]
     Active Substance: CHLORHEXIDINE GLUCONATE
     Route: 065
  243. PHTHALYLSULFATHIAZOLE [Suspect]
     Active Substance: PHTHALYLSULFATHIAZOLE
     Indication: Rheumatoid arthritis
     Route: 058
  244. PHTHALYLSULFATHIAZOLE [Suspect]
     Active Substance: PHTHALYLSULFATHIAZOLE
     Route: 048
  245. PHTHALYLSULFATHIAZOLE [Suspect]
     Active Substance: PHTHALYLSULFATHIAZOLE
     Dosage: 1000 MG, BID (500 MG, BID)
     Route: 065
  246. PHTHALYLSULFATHIAZOLE [Suspect]
     Active Substance: PHTHALYLSULFATHIAZOLE
     Dosage: 500 MG, BID
     Route: 065
  247. PHTHALYLSULFATHIAZOLE [Suspect]
     Active Substance: PHTHALYLSULFATHIAZOLE
     Route: 065
  248. PHTHALYLSULFATHIAZOLE [Suspect]
     Active Substance: PHTHALYLSULFATHIAZOLE
     Dosage: 2000 MG, QD (1000 MG, BID)
     Route: 065
  249. PSEUDOEPHEDRINE HYDROCHLORIDE [Suspect]
     Active Substance: PSEUDOEPHEDRINE HYDROCHLORIDE
     Indication: Rheumatoid arthritis
     Route: 065
  250. RAMIPRIL [Suspect]
     Active Substance: RAMIPRIL
     Indication: Product used for unknown indication
     Route: 065
  251. CETIRIZINE HYDROCHLORIDE\PSEUDOEPHEDRINE HYDROCHLORIDE [Suspect]
     Active Substance: CETIRIZINE HYDROCHLORIDE\PSEUDOEPHEDRINE HYDROCHLORIDE
     Indication: Rheumatoid arthritis
     Route: 065
  252. CETIRIZINE HYDROCHLORIDE\PSEUDOEPHEDRINE HYDROCHLORIDE [Suspect]
     Active Substance: CETIRIZINE HYDROCHLORIDE\PSEUDOEPHEDRINE HYDROCHLORIDE
     Route: 065
  253. CETIRIZINE HYDROCHLORIDE\PSEUDOEPHEDRINE HYDROCHLORIDE [Suspect]
     Active Substance: CETIRIZINE HYDROCHLORIDE\PSEUDOEPHEDRINE HYDROCHLORIDE
     Route: 048
  254. REMICADE [Suspect]
     Active Substance: INFLIXIMAB
     Indication: Rheumatoid arthritis
     Route: 042
  255. REMICADE [Suspect]
     Active Substance: INFLIXIMAB
     Route: 042
  256. REMICADE [Suspect]
     Active Substance: INFLIXIMAB
     Route: 042
  257. SIMPONI [Suspect]
     Active Substance: GOLIMUMAB
     Indication: Rheumatoid arthritis
     Route: 058
  258. SIMPONI [Suspect]
     Active Substance: GOLIMUMAB
     Indication: Psoriatic arthropathy
     Route: 058
  259. SIMPONI [Suspect]
     Active Substance: GOLIMUMAB
     Route: 042
  260. SIMPONI [Suspect]
     Active Substance: GOLIMUMAB
     Route: 048
  261. SIMPONI [Suspect]
     Active Substance: GOLIMUMAB
     Route: 052
  262. STELARA [Suspect]
     Active Substance: USTEKINUMAB
     Indication: Product used for unknown indication
     Route: 042
  263. STELARA [Suspect]
     Active Substance: USTEKINUMAB
     Route: 058
  264. STELARA [Suspect]
     Active Substance: USTEKINUMAB
     Route: 065
  265. SULFAMETHOXAZOLE [Suspect]
     Active Substance: SULFAMETHOXAZOLE
     Indication: Rheumatoid arthritis
     Route: 065
  266. SULFAMETHOXAZOLE AND TRIMETHOPRIM [Suspect]
     Active Substance: SULFAMETHOXAZOLE\TRIMETHOPRIM
     Indication: Product used for unknown indication
     Route: 067
  267. SULFAMETHOXAZOLE AND TRIMETHOPRIM [Suspect]
     Active Substance: SULFAMETHOXAZOLE\TRIMETHOPRIM
     Route: 065
  268. SULFASALAZINE [Suspect]
     Active Substance: SULFASALAZINE
     Indication: Rheumatoid arthritis
     Dosage: 500 MG, QD
     Route: 058
  269. SULFASALAZINE [Suspect]
     Active Substance: SULFASALAZINE
     Dosage: 1000 MG, QD
     Route: 048
  270. SULFASALAZINE [Suspect]
     Active Substance: SULFASALAZINE
     Dosage: 1 G, QD
     Route: 065
  271. SULFASALAZINE [Suspect]
     Active Substance: SULFASALAZINE
     Dosage: 365 DOSAGE FORM, QD
     Route: 065
  272. SULFASALAZINE [Suspect]
     Active Substance: SULFASALAZINE
     Dosage: 100 MG, QD
     Route: 048
  273. SULFASALAZINE [Suspect]
     Active Substance: SULFASALAZINE
     Dosage: 2000 MG, QD
     Route: 048
  274. SULFASALAZINE [Suspect]
     Active Substance: SULFASALAZINE
     Dosage: 4000 MG, QD
     Route: 048
  275. SULFASALAZINE [Suspect]
     Active Substance: SULFASALAZINE
     Dosage: 1000 MG, BID
     Route: 048
  276. SULFASALAZINE [Suspect]
     Active Substance: SULFASALAZINE
     Dosage: 2000 MG, QD (1000 MG, BID)
     Route: 048
  277. TOCILIZUMAB [Suspect]
     Active Substance: TOCILIZUMAB
     Indication: Rheumatoid arthritis
     Route: 042
  278. TOCILIZUMAB [Suspect]
     Active Substance: TOCILIZUMAB
     Route: 058
  279. TOCILIZUMAB [Suspect]
     Active Substance: TOCILIZUMAB
     Route: 065
  280. TOFACITINIB CITRATE [Suspect]
     Active Substance: TOFACITINIB CITRATE
     Indication: Rheumatoid arthritis
     Dosage: 5 MG, BID
     Route: 065
  281. TOFACITINIB CITRATE [Suspect]
     Active Substance: TOFACITINIB CITRATE
     Indication: Psoriatic arthropathy
     Dosage: 5 MG, BID
     Route: 048
  282. TOFACITINIB CITRATE [Suspect]
     Active Substance: TOFACITINIB CITRATE
     Dosage: 5 MG, QW
     Route: 048
  283. TOFACITINIB CITRATE [Suspect]
     Active Substance: TOFACITINIB CITRATE
     Route: 058
  284. TOFACITINIB CITRATE [Suspect]
     Active Substance: TOFACITINIB CITRATE
     Dosage: 10 MG, QD (5 MG, BID)
     Route: 048
  285. TOFACITINIB CITRATE [Suspect]
     Active Substance: TOFACITINIB CITRATE
     Dosage: 10 MG, QD (5 MG, BID)
     Route: 065
  286. TOFACITINIB CITRATE [Suspect]
     Active Substance: TOFACITINIB CITRATE
     Dosage: 10 MG, QD
     Route: 048
  287. TRAMADOL HYDROCHLORIDE [Suspect]
     Active Substance: TRAMADOL HYDROCHLORIDE
     Indication: Product used for unknown indication
     Route: 065
  288. TRIAMCINOLONE ACETONIDE [Suspect]
     Active Substance: TRIAMCINOLONE ACETONIDE
     Indication: Rheumatoid arthritis
     Route: 014
  289. TRIAMCINOLONE ACETONIDE [Suspect]
     Active Substance: TRIAMCINOLONE ACETONIDE
     Route: 065
  290. USTEKINUMAB [Suspect]
     Active Substance: USTEKINUMAB
     Indication: Psoriatic arthropathy
     Route: 042
  291. VITAMIN C [Suspect]
     Active Substance: ASCORBIC ACID
     Indication: Product used for unknown indication
     Route: 065
  292. VITAMIN D3 [Suspect]
     Active Substance: CHOLECALCIFEROL
     Indication: Product used for unknown indication
     Route: 065
  293. PREDNISONE [Suspect]
     Active Substance: PREDNISONE
     Indication: Rheumatoid arthritis
     Route: 048
  294. XELJANZ [Suspect]
     Active Substance: TOFACITINIB CITRATE
     Indication: Rheumatoid arthritis
     Route: 065
  295. XELJANZ [Suspect]
     Active Substance: TOFACITINIB CITRATE
     Route: 048
  296. XELJANZ [Suspect]
     Active Substance: TOFACITINIB CITRATE
     Route: 016
  297. XELJANZ [Suspect]
     Active Substance: TOFACITINIB CITRATE
     Route: 048
  298. XELJANZ [Suspect]
     Active Substance: TOFACITINIB CITRATE
     Route: 048
  299. XELJANZ [Suspect]
     Active Substance: TOFACITINIB CITRATE
     Dosage: 10 MG, QD
     Route: 048
  300. XELJANZ [Suspect]
     Active Substance: TOFACITINIB CITRATE
     Dosage: 5 MG, BID
     Route: 065
  301. XELJANZ [Suspect]
     Active Substance: TOFACITINIB CITRATE
     Dosage: 1 DOSAGE FORM, QD
     Route: 065
  302. DESOXIMETASONE [Suspect]
     Active Substance: DESOXIMETASONE
     Indication: Rheumatoid arthritis
     Route: 058
  303. DESOXIMETASONE [Suspect]
     Active Substance: DESOXIMETASONE
     Route: 058
  304. DESOXIMETASONE [Suspect]
     Active Substance: DESOXIMETASONE
     Route: 048
  305. DESOXIMETASONE [Suspect]
     Active Substance: DESOXIMETASONE
     Route: 003
  306. DESOXIMETASONE [Suspect]
     Active Substance: DESOXIMETASONE
     Route: 050
  307. DESOXIMETASONE [Suspect]
     Active Substance: DESOXIMETASONE
     Dosage: 25 MG, QD
     Route: 048
  308. DESOXIMETASONE [Suspect]
     Active Substance: DESOXIMETASONE
     Route: 003
  309. DESOXIMETASONE [Suspect]
     Active Substance: DESOXIMETASONE
     Route: 042
  310. DESOXIMETASONE [Suspect]
     Active Substance: DESOXIMETASONE
     Route: 016
  311. DESOXIMETASONE [Suspect]
     Active Substance: DESOXIMETASONE
     Route: 003
  312. DESOXIMETASONE [Suspect]
     Active Substance: DESOXIMETASONE
     Route: 048

REACTIONS (11)
  - Osteoporosis [Fatal]
  - Prescribed underdose [Fatal]
  - Pulmonary fibrosis [Fatal]
  - Red blood cell sedimentation rate increased [Fatal]
  - Retinitis [Fatal]
  - Tachycardia [Fatal]
  - Pneumonia [Fatal]
  - Thrombocytopenia [Fatal]
  - Visual impairment [Fatal]
  - Therapeutic product effect incomplete [Fatal]
  - Off label use [Fatal]
